FAERS Safety Report 4816912-0 (Version None)
Quarter: 2005Q3

REPORT INFORMATION
  Report Type: 
  Country: None (occurrence: None)
  Receive Date: 20050929
  Receipt Date: 20050620
  Transmission Date: 20060218
  Serious: No
  Sender: FDA-Public Use
  Company Number: 05P-163-0303636-00

PATIENT
  Age: 85 Year
  Sex: Male

DRUGS (11)
  1. HUMIRA [Suspect]
     Indication: RHEUMATOID ARTHRITIS
     Dosage: 40 MG, 1 IN 1 WK, SUBCUTANEOUS
     Route: 058
     Dates: start: 20050501
  2. AZATHIOPRINE [Concomitant]
  3. SODIUM CHLORIDE [Concomitant]
  4. GLUCOPHAGE [Concomitant]
  5. POTASSIUM [Concomitant]
  6. IRON [Concomitant]
  7. VITAMINS [Concomitant]
  8. SULTOPRIDE [Concomitant]
  9. IRBESARTAN [Concomitant]
  10. PAROXETINE HYDROCHLORIDE [Concomitant]
  11. OXYGEN [Concomitant]

REACTIONS (1)
  - EPISTAXIS [None]
